FAERS Safety Report 6571432-0 (Version None)
Quarter: 2010Q1

REPORT INFORMATION
  Report Type: 
  Country: None (occurrence: None)
  Receive Date: 20100205
  Receipt Date: 20100126
  Transmission Date: 20100710
  Serious: Yes (Other)
  Sender: FDA-Public Use
  Company Number: DE-PFIZER INC-2010010336

PATIENT
  Age: 61 Year
  Sex: Male

DRUGS (3)
  1. SORTIS [Suspect]
     Dosage: 10 MG/DAY
     Route: 048
  2. ASPIRIN [Concomitant]
     Dosage: UNK
  3. FINASTERIDE [Concomitant]
     Dosage: 1 MG, UNK

REACTIONS (1)
  - BLOOD CREATINE PHOSPHOKINASE MB INCREASED [None]
